FAERS Safety Report 4374416-6 (Version None)
Quarter: 2004Q2

REPORT INFORMATION
  Report Type: 
  Country: None (occurrence: None)
  Receive Date: 20040608
  Receipt Date: 20040608
  Transmission Date: 20050107
  Serious: Yes (Other)
  Sender: FDA-Public Use
  Company Number: None

PATIENT
  Age: 75 Year
  Sex: Female

DRUGS (8)
  1. ESTROPIPATE [Suspect]
     Dosage: 1 TAB QD
  2. LIPITOR [Concomitant]
  3. LEVOXYL [Concomitant]
  4. BEXTRA [Concomitant]
  5. ATENOLOL [Concomitant]
  6. DIPYRIDAMOLE [Concomitant]
  7. SPIRONOLACTONE/HCTZ [Concomitant]
  8. ACYCLOVIR [Concomitant]

REACTIONS (3)
  - FEELING HOT [None]
  - HYPERHIDROSIS [None]
  - PHARMACEUTICAL PRODUCT COMPLAINT [None]
